FAERS Safety Report 9345699 (Version 2)
Quarter: 2013Q3

REPORT INFORMATION
  Report Type: Report from Study
  Country: US (occurrence: US)
  Receive Date: 20130613
  Receipt Date: 20130723
  Transmission Date: 20140515
  Serious: Yes (Death, Other)
  Sender: FDA-Public Use
  Company Number: US-GENZYME-MOZO-1000873

PATIENT
  Age: 56 Year
  Sex: Female
  Weight: 84.7 kg

DRUGS (29)
  1. MOZOBIL [Suspect]
     Indication: ACUTE MYELOID LEUKAEMIA
     Dosage: 17040 MCG, QOD (ON DAYS 1,3,5,7,8,11,13)
     Route: 058
     Dates: start: 20130516, end: 20130528
  2. FILGRASTIM [Suspect]
     Indication: ACUTE MYELOID LEUKAEMIA
     Dosage: 780 MCG, QOD (X7DAYS)
     Route: 058
     Dates: start: 20130516, end: 20130528
  3. SORAFENIB [Suspect]
     Indication: ACUTE MYELOID LEUKAEMIA
     Dosage: 800MG, BID (4 TABLETS)
     Route: 048
     Dates: start: 20130516, end: 20130524
  4. CLOBETASOL [Concomitant]
     Indication: RASH
     Dosage: UNK (0.05%;1 APPLICATION)
     Route: 065
  5. FLEXERIL [Concomitant]
     Indication: MUSCLE SPASMS
     Dosage: 5 MG QD (1 TABLET EVERY 08 HOURS)
     Route: 048
  6. BENADRYL [Concomitant]
     Indication: PRURITUS
     Dosage: 25 MG, PRN (1 TABLET EVERY 6 HOURS)
     Route: 048
  7. HYDROCORTISONE [Concomitant]
     Indication: RASH
     Dosage: 2.5 %; 1 APPLICATION, BID
     Route: 065
  8. ZOFRAN [Concomitant]
     Indication: NAUSEA
     Dosage: 8 MG, PRN (EVERY 08 HOURS)
     Route: 048
  9. ZOFRAN [Concomitant]
     Indication: VOMITING
  10. ULTRAM [Concomitant]
     Indication: PAIN
     Dosage: 50 MG, PRN (EVERY 06 HOURS)
     Route: 048
  11. BALMEX [Concomitant]
     Indication: PRURITUS
     Dosage: UNK (1 APPLICATION; EVERY 12 HOURS)
     Route: 065
  12. ALLOPURINOL [Concomitant]
     Indication: HYPERURICAEMIA
     Dosage: 100 MG, QD
     Route: 048
  13. ENTOCORT [Concomitant]
     Indication: PROPHYLAXIS AGAINST GRAFT VERSUS HOST DISEASE
     Dosage: 3 MG, QD
     Route: 048
  14. LEXAPRO [Concomitant]
     Indication: AFFECTIVE DISORDER
     Dosage: 10 MG, QD (IN MORNING)
     Route: 048
  15. HEPARIN LOCK FLUSH [Concomitant]
     Indication: CATHETER MANAGEMENT
     Dosage: 100 U/ML, QD (1 SYRINGE)
     Route: 042
  16. LEVAQUIN [Concomitant]
     Indication: INFECTION PROPHYLAXIS
     Dosage: 500 MG, QD
     Route: 048
  17. LEVAQUIN [Concomitant]
     Indication: ANTIBIOTIC PROPHYLAXIS
     Dosage: 500 MG, QD
     Route: 048
  18. MAGNESIUM OXIDE [Concomitant]
     Indication: MINERAL SUPPLEMENTATION
     Dosage: 500 MG, QD
     Route: 048
  19. MEGESTROL [Concomitant]
     Indication: DECREASED APPETITE
     Dosage: 40 MG/ML, QD (10 MILLITERS 400 MG)
     Route: 048
  20. LOPRESSOR [Concomitant]
     Indication: BLOOD PRESSURE
     Dosage: UNK (1.5 TABLETS 75 MG)
     Route: 048
  21. MYCAMINE [Concomitant]
     Indication: ANTIFUNGAL PROPHYLAXIS
     Dosage: 100 MG, QD (1 IV INFUSION)
     Route: 042
  22. PAMELOR [Concomitant]
     Indication: SLEEP DISORDER
     Dosage: 10 MG, QD (AT BEDTIME)
     Route: 048
  23. PROTONIX [Concomitant]
     Indication: ABDOMINAL PAIN UPPER
     Dosage: 40 MG, QD
     Route: 048
  24. PROCHLORPERAZINE [Concomitant]
     Indication: NAUSEA
     Dosage: 10 MG, QD (EVERY 06 HOURS)
     Route: 048
  25. RENAGEL [Concomitant]
     Indication: HYPERPHOSPHATAEMIA
     Dosage: 800 MG, TID
     Route: 048
  26. PROGRAF [Concomitant]
     Indication: PROPHYLAXIS AGAINST GRAFT VERSUS HOST DISEASE
     Dosage: 0.5 MG, QD
     Route: 048
  27. TOPAMAX [Concomitant]
     Indication: HEADACHE
     Dosage: 25 MG, BID
     Route: 048
  28. ACTIGALL [Concomitant]
     Indication: PROPHYLAXIS
     Dosage: 300 MG, TID
     Route: 048
  29. VALTREX [Concomitant]
     Indication: ANTIVIRAL PROPHYLAXIS
     Dosage: 500 MG, QD
     Route: 048

REACTIONS (3)
  - Respiratory arrest [Fatal]
  - Bronchial obstruction [Fatal]
  - Pneumonia [Not Recovered/Not Resolved]
